FAERS Safety Report 17122357 (Version 3)
Quarter: 2019Q4

REPORT INFORMATION
  Report Type: Report from Study
  Country: JP (occurrence: JP)
  Receive Date: 20191206
  Receipt Date: 20191219
  Transmission Date: 20200122
  Serious: Yes (Hospitalization)
  Sender: FDA-Public Use
  Company Number: JP-EISAI MEDICAL RESEARCH-EC-2019-066582

PATIENT
  Age: 61 Year
  Sex: Male
  Weight: 73 kg

DRUGS (6)
  1. FEBURIC [Concomitant]
     Active Substance: FEBUXOSTAT
  2. TAKECAB [Concomitant]
     Active Substance: VONOPRAZAN FUMURATE
  3. LOXOPROFEN [Concomitant]
     Active Substance: LOXOPROFEN
  4. ERIBULIN [Suspect]
     Active Substance: ERIBULIN
     Indication: SMALL CELL LUNG CANCER
     Route: 041
     Dates: start: 20191015, end: 20191118
  5. NIVOLUMAB [Suspect]
     Active Substance: NIVOLUMAB
     Indication: SMALL CELL LUNG CANCER
     Route: 041
     Dates: start: 20191015, end: 20191118
  6. TAMSULOSIN HYDROCHLORIDE OD [Concomitant]
     Active Substance: TAMSULOSIN HYDROCHLORIDE

REACTIONS (1)
  - Pneumonia [Not Recovered/Not Resolved]

NARRATIVE: CASE EVENT DATE: 20191203
